FAERS Safety Report 4885043-6 (Version None)
Quarter: 2006Q1

REPORT INFORMATION
  Report Type: 
  Country: None (occurrence: None)
  Receive Date: 20060119
  Receipt Date: 20051230
  Transmission Date: 20060701
  Serious: Yes (Disabling, Other)
  Sender: FDA-Public Use
  Company Number: US-MERCK-0601USA00135

PATIENT
  Age: 53 Year
  Sex: Female
  Weight: 71 kg

DRUGS (2)
  1. VIOXX [Suspect]
     Indication: BURSITIS
     Route: 048
     Dates: start: 20000315, end: 20021015
  2. VIOXX [Suspect]
     Indication: FIBROMYALGIA
     Route: 048
     Dates: start: 20000315, end: 20021015

REACTIONS (10)
  - ARTHRALGIA [None]
  - BASAL CELL CARCINOMA [None]
  - CEREBROVASCULAR ACCIDENT [None]
  - CHEST PAIN [None]
  - DYSPNOEA [None]
  - HYPERTENSION [None]
  - MYALGIA [None]
  - PAIN [None]
  - STRESS INCONTINENCE [None]
  - SYNCOPE [None]
